FAERS Safety Report 5071561-7 (Version None)
Quarter: 2006Q3

REPORT INFORMATION
  Report Type: 
  Country: None (occurrence: None)
  Receive Date: 20060803
  Receipt Date: 20060803
  Transmission Date: 20061208
  Serious: Yes (Hospitalization)
  Sender: FDA-Public Use
  Company Number: None

PATIENT
  Age: 83 Year
  Sex: Male
  Weight: 82.5 kg

DRUGS (2)
  1. COLCHICINE 0.6MG [Suspect]
     Indication: GOUT
     Dosage: 0.6 MG PO TID X 10 DAYS
     Route: 048
     Dates: start: 20060517, end: 20060527
  2. CILOSTAZOL [Suspect]
     Indication: PERIPHERAL VASCULAR DISORDER
     Dosage: 100 MG PO BID
     Route: 048
     Dates: start: 20020919

REACTIONS (4)
  - ABDOMINAL PAIN [None]
  - ASTHENIA [None]
  - DIARRHOEA [None]
  - HAEMATOCHEZIA [None]
